FAERS Safety Report 5131871-1 (Version None)
Quarter: 2006Q4

REPORT INFORMATION
  Report Type: 
  Country: None (occurrence: None)
  Receive Date: 20061016
  Receipt Date: 20060928
  Transmission Date: 20070319
  Serious: Yes (Hospitalization)
  Sender: FDA-Public Use
  Company Number: US-2006-026073

PATIENT
  Age: 62 Year
  Sex: Female
  Weight: 81.6 kg

DRUGS (16)
  1. BETASERON [Suspect]
     Indication: MULTIPLE SCLEROSIS
     Dosage: 8 MIU, EVERY 2D, SUBCUTANEOUS
     Route: 058
     Dates: start: 20040403
  2. REQUIP [Concomitant]
  3. SYNTHROID [Concomitant]
  4. ESTRADIOL INJ [Concomitant]
  5. NEXIUM [Concomitant]
  6. COMTREX (DEXTROMETHORPHAN HYDROBROMIDE, PHENYLPROPANOLAMINE HYDROCHLOR [Concomitant]
  7. POTASSIUM (POTASSIUM) [Concomitant]
  8. LASIX [Concomitant]
  9. SINEMET [Concomitant]
  10. MULTIVITAMINS (RETINOL, PANTHENOL) [Concomitant]
  11. OMEGA 3 (FISH OIL) [Concomitant]
  12. MAGNESIUM (MAGNESIUM) [Concomitant]
  13. PROVIGIL [Concomitant]
  14. LOW DOSE ASPIRIN (ACETYLSALICYLIC ACID) [Concomitant]
  15. NOVOLOG [Concomitant]
  16. CYMBALTA [Concomitant]

REACTIONS (2)
  - COLITIS ULCERATIVE [None]
  - CROHN'S DISEASE [None]
